FAERS Safety Report 19199934 (Version 1)
Quarter: 2021Q2

REPORT INFORMATION
  Report Type: Spontaneous
  Country: NL (occurrence: NL)
  Receive Date: 20210430
  Receipt Date: 20210430
  Transmission Date: 20210717
  Serious: Yes (Hospitalization)
  Sender: FDA-Public Use
  Company Number: NL-ORGANON-O2104NLD001957

PATIENT
  Sex: Female
  Weight: 62 kg

DRUGS (1)
  1. SIMVASTATIN. [Suspect]
     Active Substance: SIMVASTATIN
     Indication: HYPERCALCAEMIA
     Dosage: ONCE PER DAY 1 TABLET. (THAT NIGHT TOOK 2 BY ACCIDENT)
     Dates: start: 2013

REACTIONS (2)
  - Pancreatitis acute [Recovered/Resolved]
  - Accidental overdose [Recovered/Resolved]
